FAERS Safety Report 23094096 (Version 2)
Quarter: 2023Q4

REPORT INFORMATION
  Report Type: Report from Study
  Country: US (occurrence: US)
  Receive Date: 20231023
  Receipt Date: 20231206
  Transmission Date: 20240109
  Serious: Yes (Other)
  Sender: FDA-Public Use
  Company Number: US-ABBVIE-5457805

PATIENT
  Age: 60 Year
  Sex: Male

DRUGS (1)
  1. HUMIRA [Suspect]
     Active Substance: ADALIMUMAB
     Indication: Psoriatic arthropathy
     Dosage: FORM STRENGTH: 40 MG/CITRATE FREE
     Route: 058
     Dates: start: 20190607

REACTIONS (4)
  - Rotator cuff syndrome [Unknown]
  - Limb injury [Unknown]
  - Skin laceration [Unknown]
  - Wound infection [Unknown]

NARRATIVE: CASE EVENT DATE: 20230601
